FAERS Safety Report 9213594 (Version 2)
Quarter: 2013Q4

REPORT INFORMATION
  Report Type: Spontaneous
  Country: US (occurrence: US)
  Receive Date: 20130405
  Receipt Date: 20131230
  Transmission Date: 20140711
  Serious: Yes (Hospitalization, Other)
  Sender: FDA-Public Use
  Company Number: US-BAYER-2013-041280

PATIENT
  Age: 34 Year
  Sex: Female

DRUGS (2)
  1. YAZ [Suspect]
     Dosage: UNK
     Dates: start: 2008
  2. YASMIN [Suspect]
     Dosage: UNK
     Dates: start: 2008

REACTIONS (6)
  - Gallbladder injury [None]
  - Cholelithiasis [None]
  - Injury [None]
  - Pain [None]
  - Pain [None]
  - Fear of disease [None]
